FAERS Safety Report 4660325-1 (Version None)
Quarter: 2005Q2

REPORT INFORMATION
  Report Type: 
  Country: None (occurrence: None)
  Receive Date: 20050511
  Receipt Date: 20050511
  Transmission Date: 20051028
  Serious: Yes (Hospitalization)
  Sender: FDA-Public Use
  Company Number: None

PATIENT
  Age: 67 Year
  Sex: Male
  Weight: 72 kg

DRUGS (12)
  1. AMANTADINE HCL [Suspect]
     Indication: INFLUENZA IMMUNISATION
     Dosage: 1 PO BID (100MG)
     Route: 048
     Dates: start: 20050108, end: 20050120
  2. ALBUTEROL [Concomitant]
  3. ATROVENT [Concomitant]
  4. AMANTADINE HCL [Concomitant]
  5. CLARITHROMYCIN [Concomitant]
  6. DILTIAZEM [Concomitant]
  7. ROBITUSSIN DM [Concomitant]
  8. COLACE [Concomitant]
  9. FLUNISOLIDE [Concomitant]
  10. LISINOPRIL [Concomitant]
  11. MEDROL [Concomitant]
  12. PRILOSEC [Concomitant]

REACTIONS (3)
  - ABDOMINAL PAIN [None]
  - FAECALOMA [None]
  - URINARY HESITATION [None]
